FAERS Safety Report 5750651-7 (Version None)
Quarter: 2008Q2

REPORT INFORMATION
  Report Type: 
  Country: None (occurrence: None)
  Receive Date: 20080528
  Receipt Date: 20080422
  Transmission Date: 20081010
  Serious: No
  Sender: FDA-Public Use
  Company Number: US-ABBOTT-08P-163-0448300-00

PATIENT
  Sex: Male
  Weight: 93.524 kg

DRUGS (3)
  1. SIMCOR [Suspect]
     Indication: HIGH DENSITY LIPOPROTEIN DECREASED
     Dosage: 500/20 MILLIGRAM
     Route: 048
     Dates: start: 20080421
  2. ASPIRIN [Concomitant]
     Indication: PROPHYLAXIS
     Dosage: 2 PILLS
  3. BISOPROLOL FUMARATE [Concomitant]
     Indication: DRUG USE FOR UNKNOWN INDICATION

REACTIONS (5)
  - FEELING HOT [None]
  - FLUSHING [None]
  - PALPITATIONS [None]
  - PRURITUS [None]
  - SENSORY DISTURBANCE [None]
